FAERS Safety Report 4541243-6 (Version None)
Quarter: 2004Q4

REPORT INFORMATION
  Report Type: 
  Country: None (occurrence: None)
  Receive Date: 20041228
  Receipt Date: 20041226
  Transmission Date: 20050328
  Serious: Yes (Other)
  Sender: FDA-Public Use
  Company Number: 200415045BCC

PATIENT
  Sex: Female

DRUGS (2)
  1. ALEVE [Suspect]
     Dosage: ORAL
     Route: 048
     Dates: end: 20041017
  2. VERELAN [Concomitant]

REACTIONS (4)
  - CONDITION AGGRAVATED [None]
  - EYE PRURITUS [None]
  - HEADACHE [None]
  - HYPERTENSION [None]
